FAERS Safety Report 26060026 (Version 1)
Quarter: 2025Q4

REPORT INFORMATION
  Report Type: Spontaneous
  Country: US (occurrence: US)
  Receive Date: 20251118
  Receipt Date: 20251118
  Transmission Date: 20260117
  Serious: No
  Sender: NANTKWEST
  Company Number: US-NantWorks-2025-US-NANT-00062

PATIENT
  Age: 76 Year
  Sex: Male
  Weight: 84.83 kg

DRUGS (3)
  1. ANKTIVA [Suspect]
     Active Substance: NOGAPENDEKIN ALFA INBAKICEPT-PMLN
     Indication: Bladder cancer
     Dosage: THERAPY START DATE
     Route: 043
     Dates: start: 20250730
  2. ANKTIVA [Suspect]
     Active Substance: NOGAPENDEKIN ALFA INBAKICEPT-PMLN
     Dosage: DATE OF LAST DOSE PRIOR TO EVENT ONSET (400 MCG); A TOTAL OF 3 DOSES RECEIVED
     Route: 043
     Dates: start: 20250812
  3. BCG [Concomitant]
     Indication: Bladder transitional cell carcinoma
     Dosage: DATE OF FIRST AND LAST DOSE PRIOR TO EVENT ONSET WERE NOT PROVIDED. THE PATIENT RECEIVED 3 OF 6 DOSE
     Route: 043

REACTIONS (1)
  - Arthralgia [Recovering/Resolving]

NARRATIVE: CASE EVENT DATE: 20250815
